FAERS Safety Report 5672202-8 (Version None)
Quarter: 2008Q1

REPORT INFORMATION
  Report Type: 
  Country: None (occurrence: None)
  Receive Date: 20080319
  Receipt Date: 20080312
  Transmission Date: 20080703
  Serious: Yes (Other)
  Sender: FDA-Public Use
  Company Number: GB-AVENTIS-200812374GDDC

PATIENT
  Sex: Male

DRUGS (3)
  1. LANTUS [Suspect]
     Dosage: DOSE: INITIA DOSE: 96 REDUCED TO 16
     Route: 058
  2. DIURETICS [Suspect]
  3. NOVORAPID [Concomitant]

REACTIONS (2)
  - FLUID RETENTION [None]
  - PNEUMONIA [None]
